FAERS Safety Report 8171761-3 (Version None)
Quarter: 2012Q1

REPORT INFORMATION
  Report Type: 
  Country: None (occurrence: None)
  Receive Date: 20120228
  Receipt Date: 20120223
  Transmission Date: 20120608
  Serious: Yes (Hospitalization)
  Sender: FDA-Public Use
  Company Number: US-GLAXOSMITHKLINE-A0898256A

PATIENT
  Sex: Male
  Weight: 100 kg

DRUGS (6)
  1. PEPCID [Concomitant]
  2. INSULIN [Concomitant]
  3. VENTOLIN [Concomitant]
  4. AVANDIA [Suspect]
     Indication: DIABETES MELLITUS
     Dosage: 8MG PER DAY
     Route: 048
     Dates: start: 20021018, end: 20050101
  5. LISINOPRIL [Concomitant]
  6. LOPID [Concomitant]

REACTIONS (4)
  - CARDIAC FAILURE CONGESTIVE [None]
  - BLINDNESS UNILATERAL [None]
  - BLINDNESS [None]
  - CORONARY ARTERY DISEASE [None]
